FAERS Safety Report 26086933 (Version 1)
Quarter: 2025Q4

REPORT INFORMATION
  Report Type: Spontaneous
  Country: US (occurrence: None)
  Receive Date: 20251124
  Receipt Date: 20251124
  Transmission Date: 20260118
  Serious: Yes (Hospitalization)
  Sender: FDA-CTU
  Company Number: None

PATIENT
  Age: 78 Year
  Sex: Female
  Weight: 70.9 kg

DRUGS (2)
  1. ALLOPURINOL [Suspect]
     Active Substance: ALLOPURINOL
     Indication: Gout
     Dosage: 200 MG DAILY ORAL ?
     Route: 048
     Dates: start: 20251001, end: 20251116
  2. INFLUENZA VIRUS VACCINE [Suspect]
     Active Substance: INFLUENZA VIRUS VACCINE
     Dates: start: 20251030, end: 20251030

REACTIONS (2)
  - Drug reaction with eosinophilia and systemic symptoms [None]
  - Blood bilirubin increased [None]

NARRATIVE: CASE EVENT DATE: 20251101
